FAERS Safety Report 5699342-1 (Version None)
Quarter: 2008Q2

REPORT INFORMATION
  Report Type: 
  Country: None (occurrence: None)
  Receive Date: 20080404
  Receipt Date: 20080328
  Transmission Date: 20081010
  Serious: Yes (Other)
  Sender: FDA-Public Use
  Company Number: JPI-P-003295

PATIENT
  Age: 43 Year
  Sex: Female
  Weight: 95.2554 kg

DRUGS (5)
  1. XYREM [Suspect]
     Indication: NARCOLEPSY
     Dosage: 4.5 GM (2.25 GM,2  IN 1 D),ORAL;    6 GM (3 GM,2 IN 1 D),ORAL
     Route: 048
     Dates: start: 20080314, end: 20080320
  2. XYREM [Suspect]
     Indication: NARCOLEPSY
     Dosage: 4.5 GM (2.25 GM,2  IN 1 D),ORAL;    6 GM (3 GM,2 IN 1 D),ORAL
     Route: 048
     Dates: start: 20080321, end: 20080325
  3. XYREM [Suspect]
     Indication: NARCOLEPSY
     Dosage: 4.5 GM (2.25 GM,2  IN 1 D),ORAL;    6 GM (3 GM,2 IN 1 D),ORAL
     Route: 048
     Dates: start: 20080326
  4. FLUOXETINE HCL [Concomitant]
  5. METHYLPHENIDATE HCL [Concomitant]

REACTIONS (3)
  - CONVULSION [None]
  - DYSPNOEA [None]
  - PARALYSIS [None]
